FAERS Safety Report 19088346 (Version 1)
Quarter: 2021Q2

REPORT INFORMATION
  Report Type: Spontaneous
  Country: FR (occurrence: FR)
  Receive Date: 20210402
  Receipt Date: 20210402
  Transmission Date: 20210717
  Serious: Yes (Hospitalization, Other)
  Sender: FDA-Public Use
  Company Number: FR-PURDUE-USA-2021-0239414

PATIENT
  Sex: Male

DRUGS (4)
  1. TABACUM [Suspect]
     Active Substance: TOBACCO LEAF
     Indication: TOBACCO USER
     Dosage: 20 UNIT, DAILY [20 CIGARETTES/JOUR]
     Route: 055
  2. CANNABIS [Suspect]
     Active Substance: CANNABIS SATIVA SUBSP. INDICA TOP
     Indication: DRUG ABUSE
     Dosage: UNK [DOSAGE TEXT: NON RENSEIGNEE]
     Route: 065
  3. OXYNORM [Suspect]
     Active Substance: OXYCODONE HYDROCHLORIDE
     Indication: DRUG ABUSE
     Dosage: UNK [7 A 8 PAR JOUR (COMPRIME)]
     Route: 048
     Dates: start: 2013
  4. TRANXENE [Suspect]
     Active Substance: CLORAZEPATE DIPOTASSIUM
     Indication: DRUG ABUSE
     Dosage: 6 UNIT, DAILY [DOSAGE TEXT: CP]
     Route: 048
     Dates: start: 2013

REACTIONS (5)
  - Loss of libido [Not Recovered/Not Resolved]
  - Allodynia [Not Recovered/Not Resolved]
  - Drug abuse [Not Recovered/Not Resolved]
  - Affect lability [Not Recovered/Not Resolved]
  - Hyperaesthesia [Not Recovered/Not Resolved]

NARRATIVE: CASE EVENT DATE: 2013
